FAERS Safety Report 6591238-6 (Version None)
Quarter: 2010Q1

REPORT INFORMATION
  Report Type: 
  Country: None (occurrence: None)
  Receive Date: 20100219
  Receipt Date: 20100209
  Transmission Date: 20100710
  Serious: Yes (Hospitalization)
  Sender: FDA-Public Use
  Company Number: PHHY2009MX59276

PATIENT
  Age: 93 Year
  Sex: Female

DRUGS (2)
  1. DIOVAN [Suspect]
     Indication: HYPERTENSION
     Dosage: 160 MG,1 TABLET/DAY
     Dates: start: 20080801, end: 20091228
  2. DIOVAN [Suspect]
     Dosage: 320 MG, 1 TABLET/DAY
     Dates: start: 20091231

REACTIONS (6)
  - BLOOD GLUCOSE INCREASED [None]
  - BLOOD PRESSURE INCREASED [None]
  - FALL [None]
  - HAEMATOMA [None]
  - HEAD INJURY [None]
  - JOINT INJURY [None]
